FAERS Safety Report 20542553 (Version 1)
Quarter: 2022Q1

REPORT INFORMATION
  Report Type: Spontaneous
  Country: FR (occurrence: FR)
  Receive Date: 20220302
  Receipt Date: 20220302
  Transmission Date: 20220423
  Serious: Yes (Congenital Anomaly, Other)
  Sender: FDA-Public Use
  Company Number: None

PATIENT
  Sex: Male
  Weight: .606 kg

DRUGS (3)
  1. TRAMADOL [Suspect]
     Active Substance: TRAMADOL
     Indication: Product used for unknown indication
     Dosage: PERIOD OF EXPOSURE NOT SPECIFIED
     Route: 064
  2. MISOPROSTOL [Suspect]
     Active Substance: MISOPROSTOL
     Indication: Product used for unknown indication
     Dosage: INCONNUE
     Route: 064
     Dates: start: 20210714, end: 20210714
  3. MIFEPRISTONE [Suspect]
     Active Substance: MIFEPRISTONE
     Indication: Product used for unknown indication
     Dosage: INCONNUE
     Route: 064
     Dates: start: 20210713, end: 20210713

REACTIONS (2)
  - Congenital central nervous system anomaly [Not Recovered/Not Resolved]
  - Foetal exposure during pregnancy [Unknown]

NARRATIVE: CASE EVENT DATE: 20210921
